FAERS Safety Report 9431200 (Version 4)
Quarter: 2013Q4

REPORT INFORMATION
  Report Type: Report from Study
  Country: US (occurrence: US)
  Receive Date: 20130730
  Receipt Date: 20131008
  Transmission Date: 20140711
  Serious: Yes (Hospitalization)
  Sender: FDA-Public Use
  Company Number: US-ASTRAZENECA-2013SE57712

PATIENT
  Age: 24338 Day
  Sex: Male

DRUGS (20)
  1. STUDY PROCEDURE [Suspect]
     Indication: CORONARY ARTERY DISEASE
  2. AZD6140 [Suspect]
     Indication: CORONARY ARTERY DISEASE
     Route: 048
     Dates: start: 20121109, end: 20130725
  3. LISINOPRIL [Suspect]
     Indication: HYPERTENSION
     Route: 048
  4. METOPROLOL [Suspect]
     Route: 048
  5. HYDROCHLOROTHIAZIDE (NON-AZ PRODUCT) [Suspect]
     Indication: HYPERTENSION
     Route: 048
  6. AMLODIPINE BESYLATE [Suspect]
     Indication: HYPERTENSION
     Route: 048
  7. GLIPIZIDE [Suspect]
     Indication: TYPE 2 DIABETES MELLITUS
     Route: 048
  8. GLARGINE INSULIN [Suspect]
     Indication: TYPE 2 DIABETES MELLITUS
     Route: 058
  9. BUPROPION [Concomitant]
     Indication: DEPRESSION
     Route: 048
  10. GABAPENTIN [Concomitant]
     Indication: NEURALGIA
     Route: 048
  11. RANITIDINE [Concomitant]
     Indication: DYSPEPSIA
     Route: 048
  12. SIMVASTATIN [Concomitant]
     Indication: HYPERCHOLESTEROLAEMIA
     Route: 048
  13. SERTRALINE HCL [Concomitant]
     Indication: DEPRESSION
     Route: 048
  14. METFORMIN [Concomitant]
     Indication: TYPE 2 DIABETES MELLITUS
     Route: 048
  15. NITROGLYCERIN [Concomitant]
     Indication: CHEST PAIN
     Dosage: AS NEEDED
     Route: 060
  16. POTASSIUM CL [Concomitant]
     Indication: MEDICAL DIET
     Route: 048
  17. ISOSORBIDE MONONITRATE [Concomitant]
     Indication: CORONARY ARTERY DISEASE
     Route: 048
  18. ASA [Concomitant]
     Route: 048
     Dates: end: 20121108
  19. ASA [Concomitant]
     Route: 048
     Dates: start: 20121109, end: 20130725
  20. ASA [Concomitant]
     Route: 048
     Dates: start: 20130726

REACTIONS (2)
  - Syncope [Recovered/Resolved]
  - Electrocardiogram abnormal [Recovered/Resolved]
